FAERS Safety Report 19594371 (Version 1)
Quarter: 2021Q3

REPORT INFORMATION
  Report Type: Spontaneous
  Country: US (occurrence: US)
  Receive Date: 20210722
  Receipt Date: 20210722
  Transmission Date: 20211014
  Serious: Yes (Life-Threatening, Other)
  Sender: FDA-Public Use
  Company Number: US-GLAXOSMITHKLINE-US2021156422

PATIENT
  Sex: Female

DRUGS (1)
  1. BENLYSTA [Suspect]
     Active Substance: BELIMUMAB
     Indication: PRODUCT USED FOR UNKNOWN INDICATION
     Dosage: 200 MG, WE
     Dates: start: 20210614, end: 2021

REACTIONS (10)
  - Condition aggravated [Unknown]
  - Crying [Unknown]
  - Autophobia [Not Recovered/Not Resolved]
  - Pain [Unknown]
  - Depression [Unknown]
  - Butterfly rash [Recovered/Resolved]
  - Anger [Not Recovered/Not Resolved]
  - Suicidal ideation [Recovered/Resolved]
  - Emotional disorder [Not Recovered/Not Resolved]
  - Irritability [Not Recovered/Not Resolved]

NARRATIVE: CASE EVENT DATE: 2021
